FAERS Safety Report 6544311-2 (Version None)
Quarter: 2010Q1

REPORT INFORMATION
  Report Type: 
  Country: None (occurrence: None)
  Receive Date: 20100120
  Receipt Date: 20100120
  Transmission Date: 20100710
  Serious: No
  Sender: FDA-Public Use
  Company Number: None

PATIENT
  Age: 75 Year
  Sex: Female
  Weight: 52.1637 kg

DRUGS (1)
  1. FLOVENT HFA [Suspect]
     Indication: ASTHMA
     Dosage: 2 PUFFS 2X DAILY PO
     Route: 048
     Dates: start: 20040101, end: 20090101

REACTIONS (4)
  - INFLUENZA LIKE ILLNESS [None]
  - LARYNGITIS [None]
  - NASOPHARYNGITIS [None]
  - VOCAL CORD INFLAMMATION [None]
